FAERS Safety Report 17604592 (Version 5)
Quarter: 2020Q3

REPORT INFORMATION
  Report Type: Spontaneous
  Country: US (occurrence: US)
  Receive Date: 20200331
  Receipt Date: 20200805
  Transmission Date: 20201102
  Serious: No
  Sender: FDA-Public Use
  Company Number: US-PFIZER INC-2020128311

PATIENT
  Age: 57 Year
  Sex: Female

DRUGS (2)
  1. XELJANZ XR [Suspect]
     Active Substance: TOFACITINIB CITRATE
     Dosage: 11 MG, DAILY
     Route: 048
     Dates: start: 20200530, end: 202007
  2. XELJANZ XR [Suspect]
     Active Substance: TOFACITINIB CITRATE
     Indication: RHEUMATOID ARTHRITIS
     Dosage: 11 MG, DAILY
     Route: 048
     Dates: start: 201908, end: 20200104

REACTIONS (8)
  - Drug ineffective [Unknown]
  - Pain [Unknown]
  - Product dose omission in error [Unknown]
  - Illness [Unknown]
  - Peripheral swelling [Unknown]
  - Muscular weakness [Unknown]
  - Back pain [Unknown]
  - Depressed mood [Unknown]

NARRATIVE: CASE EVENT DATE: 2019
